FAERS Safety Report 4335636-X (Version None)
Quarter: 2004Q2

REPORT INFORMATION
  Report Type: 
  Country: None (occurrence: None)
  Receive Date: 20040409
  Receipt Date: 20040329
  Transmission Date: 20050107
  Serious: Yes (Death)
  Sender: FDA-Public Use
  Company Number: IT-MERCK-0404ITA00001

PATIENT
  Age: 72 Year
  Sex: Male

DRUGS (4)
  1. AMIKACIN [Concomitant]
     Route: 065
  2. PRIMAXIN [Suspect]
     Indication: PERITONITIS
     Route: 042
  3. PRIMAXIN [Suspect]
     Indication: SEPSIS
     Route: 042
  4. PIPERACILLIN SODIUM AND TAZOBACTAM SODIUM [Concomitant]
     Route: 065

REACTIONS (2)
  - DRUG INEFFECTIVE [None]
  - SEPSIS [None]
